FAERS Safety Report 7687423-2 (Version None)
Quarter: 2011Q3

REPORT INFORMATION
  Report Type: 
  Country: None (occurrence: None)
  Receive Date: 20110816
  Receipt Date: 20110802
  Transmission Date: 20111222
  Serious: Yes (Hospitalization)
  Sender: FDA-Public Use
  Company Number: PHHY2011JP70962

PATIENT
  Age: 69 Year
  Sex: Female

DRUGS (1)
  1. AMLODIPINE BESYLATE/VALSARTAN [Suspect]
     Indication: HYPERTENSION
     Dosage: UNK UKN, UNK
     Route: 048
     Dates: start: 20110524

REACTIONS (2)
  - BLOOD PRESSURE SYSTOLIC INCREASED [None]
  - THALAMUS HAEMORRHAGE [None]
